FAERS Safety Report 20423408 (Version 1)
Quarter: 2022Q1

REPORT INFORMATION
  Report Type: Spontaneous
  Country: PR (occurrence: PR)
  Receive Date: 20220203
  Receipt Date: 20220203
  Transmission Date: 20220423
  Serious: No
  Sender: FDA-Public Use
  Company Number: PR-PERRIGO-21PR033408

PATIENT
  Age: 20 Year
  Sex: Male
  Weight: 81.633 kg

DRUGS (1)
  1. IBUPROFEN AND DIPHENHYDRAMINE CITRATE [Suspect]
     Active Substance: DIPHENHYDRAMINE CITRATE\IBUPROFEN
     Indication: Headache
     Dosage: 2 TABLETS, TWICE IN 7 HOURS
     Route: 048
     Dates: start: 20210118, end: 20210118

REACTIONS (1)
  - Inappropriate schedule of product administration [Recovered/Resolved]

NARRATIVE: CASE EVENT DATE: 20210118
